FAERS Safety Report 13027774 (Version 1)
Quarter: 2016Q4

REPORT INFORMATION
  Report Type: Spontaneous
  Country: BR (occurrence: BR)
  Receive Date: 20161214
  Receipt Date: 20161214
  Transmission Date: 20170207
  Serious: Yes (Hospitalization, Other)
  Sender: FDA-Public Use
  Company Number: BR-ELI_LILLY_AND_COMPANY-BR201612001245

PATIENT
  Age: 42 Year
  Sex: Female
  Weight: 84 kg

DRUGS (4)
  1. SIMVASTATIN. [Concomitant]
     Active Substance: SIMVASTATIN
     Dosage: UNK, UNKNOWN
     Route: 065
  2. LOSARTAN. [Concomitant]
     Active Substance: LOSARTAN
     Dosage: UNK, UNKNOWN
     Route: 065
  3. HUMULIN N [Suspect]
     Active Substance: INSULIN HUMAN
     Dosage: 25 IU, EACH EVENING
     Route: 058
  4. HUMULIN N [Suspect]
     Active Substance: INSULIN HUMAN
     Indication: DIABETES MELLITUS
     Dosage: 40 IU, EACH MORNING
     Route: 058

REACTIONS (3)
  - Loss of consciousness [Unknown]
  - Cerebrovascular accident [Unknown]
  - Speech disorder [Unknown]

NARRATIVE: CASE EVENT DATE: 201011
